FAERS Safety Report 24836667 (Version 2)
Quarter: 2025Q1

REPORT INFORMATION
  Report Type: Spontaneous
  Country: US (occurrence: US)
  Receive Date: 20250113
  Receipt Date: 20250113
  Transmission Date: 20250408
  Serious: Yes (Hospitalization)
  Sender: ROCHE
  Company Number: US-ROCHE-10000173236

PATIENT
  Age: 62 Year
  Sex: Female
  Weight: 66 kg

DRUGS (6)
  1. COBIMETINIB [Suspect]
     Active Substance: COBIMETINIB
     Indication: Metastatic malignant melanoma
     Route: 065
     Dates: start: 202410
  2. BRAFTOVI [Suspect]
     Active Substance: ENCORAFENIB
     Indication: Metastatic malignant melanoma
     Route: 048
     Dates: start: 20241007
  3. MEKTOVI [Suspect]
     Active Substance: BINIMETINIB
     Indication: Metastatic malignant melanoma
     Route: 048
     Dates: start: 20241007
  4. MEKTOVI [Suspect]
     Active Substance: BINIMETINIB
     Route: 048
     Dates: start: 20240926
  5. Doxycycline (Vibramycin) [Concomitant]
     Route: 048
  6. ELIQUIS [Concomitant]
     Active Substance: APIXABAN
     Indication: Pulmonary embolism
     Dates: start: 20240517

REACTIONS (4)
  - Dizziness [Recovering/Resolving]
  - Cough [Recovering/Resolving]
  - Pneumonia [Unknown]
  - Pneumonitis [Unknown]

NARRATIVE: CASE EVENT DATE: 20241203
